FAERS Safety Report 7379877-6 (Version None)
Quarter: 2011Q1

REPORT INFORMATION
  Report Type: 
  Country: None (occurrence: None)
  Receive Date: 20110329
  Receipt Date: 20110315
  Transmission Date: 20110831
  Serious: Yes (Other)
  Sender: FDA-Public Use
  Company Number: US-JNJFOC-20110311003

PATIENT
  Age: 41 Year
  Sex: Female
  Weight: 90.72 kg

DRUGS (4)
  1. EXTRA STRENGTH TYLENOL [Suspect]
     Indication: HEADACHE
     Route: 048
  2. EXTRA STRENGTH TYLENOL [Suspect]
     Route: 048
  3. EXTRA STRENGTH TYLENOL [Suspect]
     Route: 048
  4. EXTRA STRENGTH TYLENOL [Suspect]
     Indication: PYREXIA
     Route: 048

REACTIONS (6)
  - SUICIDAL IDEATION [None]
  - CHANGE OF BOWEL HABIT [None]
  - DYSURIA [None]
  - SELF-INJURIOUS IDEATION [None]
  - INSOMNIA [None]
  - DRUG INEFFECTIVE [None]
